FAERS Safety Report 12214249 (Version 1)
Quarter: 2016Q1

REPORT INFORMATION
  Report Type: Spontaneous
  Country: None (occurrence: ES)
  Receive Date: 20160328
  Receipt Date: 20160328
  Transmission Date: 20160526
  Serious: Yes (Hospitalization, Other)
  Sender: FDA-Public Use
  Company Number: ES-POPULATION COUNCIL, INC.-1049775

PATIENT
  Age: 29 Year
  Sex: Female

DRUGS (1)
  1. NORPLANT [Suspect]
     Active Substance: LEVONORGESTREL
     Indication: CONTRACEPTION
     Route: 058
     Dates: start: 2002, end: 20080701

REACTIONS (5)
  - International normalised ratio increased [None]
  - Hypovolaemic shock [None]
  - Uterine haemorrhage [Recovering/Resolving]
  - Platelet count decreased [None]
  - Haemoglobin decreased [None]

NARRATIVE: CASE EVENT DATE: 20080726
